FAERS Safety Report 25245534 (Version 1)
Quarter: 2025Q2

REPORT INFORMATION
  Report Type: Spontaneous
  Country: US (occurrence: None)
  Receive Date: 20250426
  Receipt Date: 20250426
  Transmission Date: 20250717
  Serious: No
  Sender: FDA-CTU
  Company Number: None

PATIENT
  Age: 67 Year
  Sex: Male
  Weight: 87.75 kg

DRUGS (1)
  1. SEMAGLUTIDE [Suspect]
     Active Substance: SEMAGLUTIDE
     Indication: Weight decreased
     Route: 061

REACTIONS (4)
  - Abdominal distension [None]
  - Pain [None]
  - Constipation [None]
  - Lethargy [None]

NARRATIVE: CASE EVENT DATE: 20250424
